FAERS Safety Report 9475075 (Version 1)
Quarter: 2013Q3

REPORT INFORMATION
  Report Type: Spontaneous
  Country: US (occurrence: US)
  Receive Date: 20130824
  Receipt Date: 20130824
  Transmission Date: 20140515
  Serious: No
  Sender: FDA-Public Use
  Company Number: US-009507513-1308USA009013

PATIENT
  Age: 64 Year
  Sex: Male

DRUGS (5)
  1. VICTRELIS [Suspect]
     Indication: HEPATITIS C
     Dosage: 200 MG, 4 DF, TID
     Route: 048
     Dates: start: 20130513
  2. PEGASYS [Suspect]
  3. RIBASPHERE [Suspect]
  4. ZOLPIDEM [Concomitant]
  5. PROCRIT [Concomitant]

REACTIONS (1)
  - Drug ineffective [Unknown]
